FAERS Safety Report 6496226-6 (Version None)
Quarter: 2009Q4

REPORT INFORMATION
  Report Type: 
  Country: None (occurrence: None)
  Receive Date: 20091214
  Receipt Date: 20091026
  Transmission Date: 20100525
  Serious: Yes (Other)
  Sender: FDA-Public Use
  Company Number: US-BRISTOL-MYERS SQUIBB COMPANY-14833487

PATIENT
  Age: 50 Year
  Sex: Male

DRUGS (4)
  1. ARIPIPRAZOLE [Suspect]
     Indication: MAJOR DEPRESSION
     Route: 048
     Dates: start: 20090601, end: 20090901
  2. DULOXETINE HYDROCHLORIDE [Suspect]
     Route: 048
  3. LITHIUM [Concomitant]
     Route: 048
  4. TOPIRAMATE [Concomitant]
     Indication: FIBROMYALGIA
     Route: 048

REACTIONS (1)
  - DIARRHOEA [None]
